FAERS Safety Report 11964774 (Version 2)
Quarter: 2016Q1

REPORT INFORMATION
  Report Type: Spontaneous
  Country: US (occurrence: US)
  Receive Date: 20160127
  Receipt Date: 20160204
  Transmission Date: 20160526
  Serious: No
  Sender: FDA-Public Use
  Company Number: US-PFIZER INC-2016022080

PATIENT
  Age: 50 Year
  Sex: Male
  Weight: 84 kg

DRUGS (3)
  1. SUTENT [Suspect]
     Active Substance: SUNITINIB MALATE
     Indication: METASTATIC RENAL CELL CARCINOMA
     Dosage: 50 MG, CYCLIC (28 DAYS ON/14 DAYS OFF)
     Dates: start: 20150831
  2. OXYCODONE [Concomitant]
     Active Substance: OXYCODONE
     Dosage: UNK
  3. ZOMETA [Concomitant]
     Active Substance: ZOLEDRONIC ACID
     Indication: HYPERCALCAEMIA
     Dosage: UNK

REACTIONS (11)
  - Weight decreased [Recovered/Resolved]
  - Fatigue [Recovered/Resolved]
  - Pyrexia [Recovering/Resolving]
  - Joint swelling [Unknown]
  - Oral pain [Unknown]
  - Cough [Recovering/Resolving]
  - Blister [Unknown]
  - Skin fissures [Unknown]
  - Tumour associated fever [Recovering/Resolving]
  - Peripheral swelling [Unknown]
  - Sputum discoloured [Recovering/Resolving]
